FAERS Safety Report 9800055 (Version 2)
Quarter: 2014Q1

REPORT INFORMATION
  Report Type: Spontaneous
  Country: US (occurrence: US)
  Receive Date: 20140106
  Receipt Date: 20140106
  Transmission Date: 20141002
  Serious: No
  Sender: FDA-Public Use
  Company Number: US-GILEAD-2010-0032096

PATIENT
  Age: 33 Year
  Sex: Female
  Weight: 68.04 kg

DRUGS (9)
  1. LETAIRIS [Suspect]
     Indication: PULMONARY ARTERIAL HYPERTENSION
     Route: 048
     Dates: start: 20100813, end: 201009
  2. OMEPRAZOLE CR [Concomitant]
  3. ZANTAC [Concomitant]
  4. METHADONE [Concomitant]
  5. MORPHINE SULFATE [Concomitant]
  6. LORAZEPAM [Concomitant]
  7. MIRAPEX [Concomitant]
  8. AMBIEN [Concomitant]
  9. FOLIC ACID [Concomitant]

REACTIONS (3)
  - Liver function test abnormal [Unknown]
  - Gastric ulcer [Unknown]
  - Skin ulcer [Unknown]
